FAERS Safety Report 5026171-4 (Version None)
Quarter: 2006Q2

REPORT INFORMATION
  Report Type: 
  Country: None (occurrence: None)
  Receive Date: 20060608
  Receipt Date: 20060524
  Transmission Date: 20061013
  Serious: Yes (Other)
  Sender: FDA-Public Use
  Company Number: US200605006190

PATIENT
  Age: 47 Year
  Sex: Female

DRUGS (1)
  1. XIGRIS [Suspect]
     Dosage: 24 UG, INTRAVENOUS
     Route: 042

REACTIONS (2)
  - COAGULOPATHY [None]
  - INJECTION SITE HAEMORRHAGE [None]
